FAERS Safety Report 15296588 (Version 1)
Quarter: 2018Q3

REPORT INFORMATION
  Report Type: Spontaneous
  Country: CN (occurrence: CN)
  Receive Date: 20180820
  Receipt Date: 20180820
  Transmission Date: 20181010
  Serious: Yes (Hospitalization, Other)
  Sender: FDA-Public Use
  Company Number: CN-ASTELLAS-2018US037171

PATIENT
  Age: 40 Year
  Sex: Female

DRUGS (8)
  1. TACROLIMUS. [Suspect]
     Active Substance: TACROLIMUS
     Indication: RENAL TRANSPLANT
     Dosage: 0.625 MG, TWICE DAILY
     Route: 048
     Dates: end: 20161014
  2. TACROLIMUS. [Interacting]
     Active Substance: TACROLIMUS
     Dosage: 0.5 MG, TWICE DAILY
     Route: 065
     Dates: start: 20161114
  3. SIROLIMUS. [Interacting]
     Active Substance: SIROLIMUS
     Dosage: UNK, UNKNOWN FREQ.
     Route: 065
     Dates: start: 2016
  4. SIROLIMUS. [Interacting]
     Active Substance: SIROLIMUS
     Route: 065
     Dates: start: 20161014, end: 2016
  5. TACROLIMUS. [Interacting]
     Active Substance: TACROLIMUS
     Dosage: 0.6 MG, TWICE DAILY
     Route: 065
     Dates: start: 20161014, end: 20161114
  6. DILTIAZEM HYDROCHLORIDE. [Interacting]
     Active Substance: DILTIAZEM HYDROCHLORIDE
     Indication: HEART RATE INCREASED
     Dosage: UNK UNK, UNKNOWN FREQ.
     Route: 042
     Dates: start: 2016, end: 2016
  7. SIROLIMUS. [Interacting]
     Active Substance: SIROLIMUS
     Indication: RENAL TRANSPLANT
     Dosage: UNK UNK, UNKNOWN FREQ. (1 MG AT MORNING, 1. 25 MG EVERY 4 DAYS)
     Route: 065
     Dates: end: 20161014
  8. MYCOPHENOLATE MOFETIL. [Concomitant]
     Active Substance: MYCOPHENOLATE MOFETIL
     Indication: RENAL TRANSPLANT
     Dosage: UNK UNK, TWICE DAILY (1. 0 G AFTER BREAKFAST, 0. 75 G AFTER DINNER)
     Route: 065

REACTIONS (11)
  - Angina pectoris [Unknown]
  - Coronary artery disease [Unknown]
  - Atrial fibrillation [Unknown]
  - Haemoglobin decreased [Unknown]
  - Decreased appetite [Unknown]
  - Drug interaction [Unknown]
  - Myocardial infarction [Unknown]
  - Renal failure [Unknown]
  - Immunosuppressant drug level increased [Recovering/Resolving]
  - Ischaemia [Unknown]
  - Arteriospasm coronary [Unknown]

NARRATIVE: CASE EVENT DATE: 2016
